FAERS Safety Report 8619202-3 (Version None)
Quarter: 2012Q3

REPORT INFORMATION
  Report Type: 
  Country: None (occurrence: None)
  Receive Date: 20120824
  Receipt Date: 20120819
  Transmission Date: 20120928
  Serious: Yes (Death, Other)
  Sender: FDA-Public Use
  Company Number: BG-CELGENEUS-022-21880-12063253

PATIENT
  Sex: Female
  Weight: 63 kg

DRUGS (18)
  1. CYCLOPHOSPHAMIDE [Suspect]
     Indication: MULTIPLE MYELOMA
     Dosage: 1000 MILLIGRAM
     Route: 065
     Dates: start: 20120523, end: 20120525
  2. DOXORUBICIN HYDROCHLORIDE [Suspect]
     Indication: MULTIPLE MYELOMA
     Dosage: 80 MILLIGRAM
     Route: 065
     Dates: start: 20120526, end: 20120526
  3. DEXAMETHASONE [Suspect]
     Dosage: 40 MILLIGRAM
     Route: 065
     Dates: start: 20120602, end: 20120605
  4. MILGAMMA [Concomitant]
     Dosage: 1 DOSAGE FORMS
     Route: 065
     Dates: start: 20120519, end: 20120605
  5. DOPAMINE HCL [Concomitant]
     Route: 041
     Dates: end: 20120611
  6. REVLIMID [Suspect]
     Indication: MULTIPLE MYELOMA
     Dosage: 25 MILLIGRAM
     Route: 048
     Dates: start: 20120530, end: 20120607
  7. NEXIUM [Concomitant]
     Dosage: 1 TABLET
     Route: 065
     Dates: start: 20120518, end: 20120605
  8. ATROPINE [Concomitant]
     Route: 065
     Dates: end: 20120611
  9. DEXAMETHASONE [Suspect]
     Indication: MULTIPLE MYELOMA
     Dosage: 40 MILLIGRAM
     Route: 065
     Dates: start: 20120523, end: 20120526
  10. SODIUM CARBONATE [Concomitant]
     Route: 065
     Dates: end: 20120611
  11. LYRICA [Concomitant]
     Dosage: 75 MILLIGRAM
     Route: 065
     Dates: start: 20120520, end: 20120605
  12. UROMITHEXANE [Concomitant]
     Indication: MULTIPLE MYELOMA
     Dosage: 800 MILLIGRAM
     Route: 065
     Dates: start: 20120523, end: 20120525
  13. ELECTROLYTE INFUSIONS [Concomitant]
     Route: 041
  14. SODIUM BICARBONATE [Concomitant]
     Route: 065
  15. VINCRISTINE [Suspect]
     Indication: MULTIPLE MYELOMA
     Dosage: 2 MILLIGRAM
     Route: 065
     Dates: start: 20120526, end: 20120602
  16. DEXAMETHASONE [Suspect]
     Dosage: 20 MILLIGRAM
     Route: 065
     Dates: start: 20120516, end: 20120519
  17. PROBITOR [Concomitant]
     Dosage: 1 DOSAGE FORMS
     Route: 065
     Dates: start: 20120515, end: 20120610
  18. TEVAGRASTIM [Concomitant]
     Indication: COLONY STIMULATING FACTOR PROPHYLAXIS
     Route: 065
     Dates: start: 20120401, end: 20120601

REACTIONS (2)
  - BONE MARROW FAILURE [None]
  - CIRCULATORY COLLAPSE [None]
